FAERS Safety Report 9311068 (Version 3)
Quarter: 2013Q2

REPORT INFORMATION
  Report Type: Spontaneous
  Country: US (occurrence: US)
  Receive Date: 20130528
  Receipt Date: 20130627
  Transmission Date: 20140414
  Serious: No
  Sender: FDA-Public Use
  Company Number: US-PFIZER INC-2013159866

PATIENT
  Age: 75 Year
  Sex: Female
  Weight: 49.89 kg

DRUGS (10)
  1. SUTENT [Suspect]
     Dosage: 50 MG, UNK
     Route: 048
     Dates: start: 20130509, end: 20130528
  2. CLONIDINE [Concomitant]
     Dosage: UNK
  3. LISINOPRIL [Concomitant]
     Dosage: UNK
  4. CLONAZEPAM [Concomitant]
     Dosage: UNK
  5. NEXIUM [Concomitant]
     Dosage: UNK
  6. ADVAIR [Concomitant]
     Dosage: UNK
  7. SPIRIVA [Concomitant]
     Dosage: UNK
  8. PRO-AIR [Concomitant]
     Dosage: UNK
  9. HYDROCODONE [Concomitant]
     Dosage: UNK
  10. PRAVASTATIN [Concomitant]
     Dosage: UNK

REACTIONS (11)
  - Diarrhoea [Unknown]
  - Stomatitis [Unknown]
  - Dysgeusia [Unknown]
  - Depression [Unknown]
  - Anxiety [Unknown]
  - Blood pressure increased [Unknown]
  - Dry skin [Unknown]
  - Confusional state [Unknown]
  - Asthenia [Unknown]
  - Jaundice [Unknown]
  - Liver function test abnormal [Unknown]
